FAERS Safety Report 22530065 (Version 1)
Quarter: 2023Q2

REPORT INFORMATION
  Report Type: Spontaneous
  Country: US (occurrence: US)
  Receive Date: 20230607
  Receipt Date: 20230607
  Transmission Date: 20230722
  Serious: Yes (Hospitalization)
  Sender: FDA-Public Use
  Company Number: US-MYLANLABS-2023M1059032

PATIENT
  Age: 40 Year
  Sex: Male

DRUGS (14)
  1. DOXORUBICIN [Suspect]
     Active Substance: DOXORUBICIN
     Indication: Hodgkin^s disease
     Dosage: UNK
     Route: 065
  2. TRETINOIN [Suspect]
     Active Substance: TRETINOIN
     Indication: Chronic myeloid leukaemia transformation
     Dosage: UNK, BID (45 MG/SQUARE METER TWICE DAILY)
     Route: 048
  3. TRETINOIN [Suspect]
     Active Substance: TRETINOIN
     Indication: Chronic myeloid leukaemia transformation
     Dosage: UNK
     Route: 065
  4. BLEOMYCIN [Suspect]
     Active Substance: BLEOMYCIN SULFATE
     Indication: Hodgkin^s disease
     Dosage: UNK
     Route: 065
  5. VINBLASTINE [Suspect]
     Active Substance: VINBLASTINE
     Indication: Hodgkin^s disease
     Dosage: UNK
     Route: 065
  6. DACARBAZINE [Suspect]
     Active Substance: DACARBAZINE
     Indication: Hodgkin^s disease
     Dosage: UNK
     Route: 065
  7. DASATINIB [Suspect]
     Active Substance: DASATINIB
     Indication: Chronic myeloid leukaemia
     Dosage: 100 MILLIGRAM, QD
     Route: 065
  8. DASATINIB [Suspect]
     Active Substance: DASATINIB
     Dosage: 60 MILLIGRAM, QD
     Route: 065
  9. IMATINIB [Concomitant]
     Active Substance: IMATINIB
     Indication: Chronic myeloid leukaemia
     Dosage: 400 MILLIGRAM, QD
     Route: 065
  10. IMATINIB [Concomitant]
     Active Substance: IMATINIB
     Dosage: 300 MILLIGRAM, QD
     Route: 065
  11. ARSENIC TRIOXIDE [Concomitant]
     Active Substance: ARSENIC TRIOXIDE
     Indication: Chronic myeloid leukaemia transformation
     Dosage: 0.15 MILLIGRAM/KILOGRAM
     Route: 042
  12. NILOTINIB [Concomitant]
     Active Substance: NILOTINIB
     Indication: Chronic myeloid leukaemia
     Dosage: 300 MILLIGRAM, QD
     Route: 065
  13. NILOTINIB [Concomitant]
     Active Substance: NILOTINIB
     Dosage: 300 MILLIGRAM, BID
     Route: 065
  14. NILOTINIB [Concomitant]
     Active Substance: NILOTINIB
     Dosage: UNK, DOSE OF NILOTINIB WAS REDUCED
     Route: 065

REACTIONS (3)
  - Chronic myeloid leukaemia transformation [Unknown]
  - Headache [Unknown]
  - Off label use [Unknown]
